FAERS Safety Report 9941838 (Version 2)
Quarter: 2014Q1

REPORT INFORMATION
  Report Type: Report from Study
  Country: US (occurrence: US)
  Receive Date: 20140303
  Receipt Date: 20140303
  Transmission Date: 20141002
  Serious: No
  Sender: FDA-Public Use
  Company Number: US-ABBVIE-12P-163-0990033-00

PATIENT
  Age: 53 Year
  Sex: Female

DRUGS (25)
  1. HUMIRA [Suspect]
     Indication: CROHN^S DISEASE
     Route: 058
     Dates: start: 20120925, end: 20120925
  2. HUMIRA [Suspect]
     Dosage: DAY 15
     Route: 058
  3. HUMIRA [Suspect]
     Route: 058
  4. CALCIUM CITRATE +D [Concomitant]
     Indication: BONE DISORDER
  5. CALCIUM CITRATE +D [Concomitant]
     Indication: ARTHROPATHY
  6. GLUCOSAMINE [Concomitant]
     Indication: BONE DISORDER
  7. MAGNESIUM [Concomitant]
     Indication: CROHN^S DISEASE
     Route: 048
  8. MAGNESIUM [Concomitant]
     Indication: DRUG LEVEL DECREASED
     Dosage: WEEKLY
  9. IRON [Concomitant]
     Indication: DRUG LEVEL DECREASED
     Dosage: WEEKLY
  10. FENTANYL PATCH [Concomitant]
     Indication: PAIN
  11. IMURAN [Concomitant]
     Indication: CROHN^S DISEASE
     Route: 048
  12. FLEXERIL [Concomitant]
     Indication: MUSCLE SPASMS
     Route: 048
  13. PROZAC [Concomitant]
     Indication: ANXIETY DISORDER
     Route: 048
  14. PEPCID [Concomitant]
     Indication: GASTROOESOPHAGEAL REFLUX DISEASE
     Route: 048
  15. GABAPENTIN [Concomitant]
     Indication: NEUROPATHY PERIPHERAL
     Route: 048
  16. FOLIC ACID [Concomitant]
     Indication: PRODUCT USED FOR UNKNOWN INDICATION
  17. B-VITAMINS [Concomitant]
     Indication: DRUG LEVEL DECREASED
  18. TENORMIN [Concomitant]
     Indication: HYPERTENSION
     Route: 048
  19. PRINIVIL [Concomitant]
     Indication: NEPHROPATHY
     Route: 048
  20. PRINIVIL [Concomitant]
     Indication: PROPHYLAXIS
  21. TRAZODONE [Concomitant]
     Indication: INSOMNIA
     Dosage: AT BEDTIME
     Route: 048
  22. HYDROCODONE [Concomitant]
     Indication: PAIN
     Dosage: 7.5/325MG AS NEEDED UP TO 3 DAILY
     Route: 048
  23. NORTREL [Concomitant]
     Indication: HORMONE REPLACEMENT THERAPY
     Dosage: 135/28 1 DAILY
  24. B-12 [Concomitant]
     Indication: PRODUCT USED FOR UNKNOWN INDICATION
     Dosage: MONTHLY
     Route: 050
  25. MAGNESIUM [Concomitant]
     Indication: BLOOD MAGNESIUM DECREASED
     Route: 042
     Dates: start: 20130121

REACTIONS (6)
  - Dizziness [Unknown]
  - Headache [Not Recovered/Not Resolved]
  - Injection site pain [Unknown]
  - Flushing [Unknown]
  - Cold sweat [Unknown]
  - Nausea [Unknown]
